FAERS Safety Report 5416965-5 (Version None)
Quarter: 2007Q3

REPORT INFORMATION
  Report Type: 
  Country: None (occurrence: None)
  Receive Date: 20070816
  Receipt Date: 20070804
  Transmission Date: 20080115
  Serious: Yes (Other)
  Sender: FDA-Public Use
  Company Number: US-PFIZER INC-2007066205

PATIENT
  Sex: Female
  Weight: 44.545 kg

DRUGS (9)
  1. CHANTIX [Suspect]
     Indication: SMOKING CESSATION THERAPY
  2. ZYRTEC [Concomitant]
  3. RANITIDINE [Concomitant]
  4. ASPIRIN [Concomitant]
  5. VITAMIN B COMPLEX CAP [Concomitant]
  6. VITAMIN CAP [Concomitant]
  7. DOCUSATE SODIUM [Concomitant]
  8. IBUPROFEN [Concomitant]
  9. PREMPRO [Concomitant]

REACTIONS (6)
  - ACTIVITIES OF DAILY LIVING IMPAIRED [None]
  - BLOOD PRESSURE DECREASED [None]
  - FEELING ABNORMAL [None]
  - HEADACHE [None]
  - SOMNOLENCE [None]
  - STOMACH DISCOMFORT [None]
